FAERS Safety Report 7511384-X (Version None)
Quarter: 2011Q2

REPORT INFORMATION
  Report Type: 
  Country: None (occurrence: None)
  Receive Date: 20110531
  Receipt Date: 20110505
  Transmission Date: 20111010
  Serious: Yes (Other)
  Sender: FDA-Public Use
  Company Number: US-BAYER-201036942NA

PATIENT
  Age: 24 Year
  Sex: Female
  Weight: 54 kg

DRUGS (9)
  1. ANTIBIOTICS [Concomitant]
  2. PAROXETINE HCL [Concomitant]
     Dosage: UNK
     Route: 048
     Dates: start: 20040831
  3. TOPROL-XL [Concomitant]
     Dosage: UNK
     Dates: start: 20041101
  4. NAPROXEN [Concomitant]
     Dosage: UNK
     Dates: start: 19990101, end: 20010101
  5. YASMIN [Suspect]
     Indication: PREMENSTRUAL SYNDROME
  6. ASCORBIC ACID [Concomitant]
  7. TOPROL-XL [Concomitant]
     Dosage: UNK
     Route: 048
     Dates: start: 20040831
  8. NSAID'S [Concomitant]
  9. YASMIN [Suspect]
     Indication: ORAL CONTRACEPTION
     Route: 048
     Dates: start: 20040628, end: 20040930

REACTIONS (4)
  - CHOLELITHIASIS [None]
  - GALLBLADDER DISORDER [None]
  - CHOLECYSTITIS CHRONIC [None]
  - WEIGHT DECREASED [None]
